FAERS Safety Report 10248830 (Version 1)
Quarter: 2014Q2

REPORT INFORMATION
  Report Type: Report from Study
  Country: CA (occurrence: CA)
  Receive Date: 20140620
  Receipt Date: 20140620
  Transmission Date: 20141212
  Serious: Yes (Other)
  Sender: FDA-Public Use
  Company Number: PHHY2014CA075833

PATIENT
  Age: 70 Year
  Sex: Male

DRUGS (8)
  1. CLOZARIL [Suspect]
     Indication: TREMOR
     Dosage: 50 MG, UNK
     Route: 048
     Dates: start: 20130501, end: 20140514
  2. CLOZARIL [Suspect]
     Indication: DYSTONIA
  3. SINEMET-CR [Concomitant]
     Dosage: 1 DF, UNK
  4. REQUIP [Concomitant]
     Dosage: 1 DF, TID AND 1 HS
  5. SYNTHROID [Concomitant]
     Dosage: 0.05 MG, DAILY
  6. VENLAFAXINE XR [Concomitant]
     Dosage: 1 DF, DAILY
  7. FLOMAX//TAMSULOSIN HYDROCHLORIDE [Concomitant]
     Dosage: 0.4 MG, DAILY
  8. CLONAZEPAM [Concomitant]
     Dosage: 2 DF, HS

REACTIONS (11)
  - Pallor [Recovered/Resolved]
  - Vertigo [Recovered/Resolved]
  - Hyperhidrosis [Recovered/Resolved]
  - Tachycardia paroxysmal [Recovered/Resolved]
  - Heart rate increased [Recovered/Resolved]
  - Palpitations [Recovered/Resolved]
  - Dyspnoea [Recovered/Resolved]
  - Malaise [Recovered/Resolved]
  - Dizziness [Recovered/Resolved]
  - Blood pressure increased [Recovered/Resolved]
  - Tremor [Recovered/Resolved]
